FAERS Safety Report 8603658-6 (Version None)
Quarter: 2012Q3

REPORT INFORMATION
  Report Type: 
  Country: None (occurrence: None)
  Receive Date: 20120817
  Receipt Date: 20120731
  Transmission Date: 20120928
  Serious: No
  Sender: FDA-Public Use
  Company Number: US-ASTRAZENECA-2011SE07937

PATIENT
  Age: 51 Year
  Sex: Male
  Weight: 93 kg

DRUGS (13)
  1. RISPERDAL [Concomitant]
  2. LISINOPRIL [Concomitant]
  3. SEROQUEL [Suspect]
     Indication: BIPOLAR DISORDER
     Route: 048
     Dates: end: 20110204
  4. ZOLOFT [Concomitant]
     Indication: DEPRESSION
  5. SERTRALINE HYDROCHLORIDE [Concomitant]
  6. PROPRANOLOL [Concomitant]
     Indication: PALPITATIONS
  7. HIGH BLOOD PRESSURE MEDICATIONS [Concomitant]
  8. ADDERALL [Concomitant]
  9. LORAZEPAM [Concomitant]
  10. PROPRANOLOL [Concomitant]
     Indication: CARDIAC DISORDER
  11. SEROQUEL [Suspect]
     Dosage: TWO TABLETS THREE HOURS BEFORE BEDTIME
     Route: 048
  12. OTC ALLERGY MEDICATION [Concomitant]
  13. XANAX [Concomitant]

REACTIONS (16)
  - MALAISE [None]
  - TREMOR [None]
  - PANIC ATTACK [None]
  - HYPERHIDROSIS [None]
  - INSOMNIA [None]
  - VITAMIN D DECREASED [None]
  - BLOOD CHOLESTEROL ABNORMAL [None]
  - PRESYNCOPE [None]
  - CHANGE IN SUSTAINED ATTENTION [None]
  - PALPITATIONS [None]
  - HICCUPS [None]
  - MOOD SWINGS [None]
  - ANGER [None]
  - ACTIVITIES OF DAILY LIVING IMPAIRED [None]
  - DRUG DOSE OMISSION [None]
  - DYSARTHRIA [None]
